FAERS Safety Report 14672113 (Version 1)
Quarter: 2018Q1

REPORT INFORMATION
  Report Type: Spontaneous
  Country: US (occurrence: US)
  Receive Date: 20180323
  Receipt Date: 20180323
  Transmission Date: 20180509
  Serious: Yes (Other)
  Sender: FDA-Public Use
  Company Number: US-MALLINCKRODT-T201801104

PATIENT
  Age: 68 Year
  Sex: Male
  Weight: 73 kg

DRUGS (3)
  1. BACLOFEN. [Concomitant]
     Active Substance: BACLOFEN
     Indication: PRODUCT USED FOR UNKNOWN INDICATION
     Dosage: UNK
     Route: 065
  2. FENTANYL TRANSDERMAL SYSTEM [Suspect]
     Active Substance: FENTANYL
     Indication: PAIN
     Dosage: 75 MCG/HR EVERY 48 HOURS,
     Route: 062
     Dates: start: 20180310
  3. GABAPENTIN. [Concomitant]
     Active Substance: GABAPENTIN
     Indication: PRODUCT USED FOR UNKNOWN INDICATION
     Dosage: UNK
     Route: 065

REACTIONS (14)
  - Toothache [Unknown]
  - Pain [Unknown]
  - Temperature intolerance [Unknown]
  - Loss of personal independence in daily activities [Unknown]
  - Product quality issue [Unknown]
  - Apparent death [Unknown]
  - Loss of consciousness [Unknown]
  - Tremor [Unknown]
  - Self-injurious ideation [Unknown]
  - Hyperhidrosis [Unknown]
  - Drug ineffective [Unknown]
  - Speech disorder [Unknown]
  - Joint range of motion decreased [Unknown]
  - Malaise [Unknown]

NARRATIVE: CASE EVENT DATE: 20180312
